FAERS Safety Report 9854679 (Version 1)
Quarter: 2014Q1

REPORT INFORMATION
  Report Type: Report from Study
  Country: FR (occurrence: FR)
  Receive Date: 20140130
  Receipt Date: 20140130
  Transmission Date: 20141002
  Serious: Yes (Hospitalization)
  Sender: FDA-Public Use
  Company Number: FR-BRISTOL-MYERS SQUIBB COMPANY-20054599

PATIENT
  Age: 53 Year
  Sex: Male

DRUGS (1)
  1. BARACLUDE [Suspect]
     Route: 048
     Dates: start: 20120425

REACTIONS (1)
  - Inguinal hernia [Recovered/Resolved]
